FAERS Safety Report 23470610 (Version 2)
Quarter: 2024Q1

REPORT INFORMATION
  Report Type: Report from Study
  Country: US (occurrence: US)
  Receive Date: 20240202
  Receipt Date: 20240208
  Transmission Date: 20240410
  Serious: Yes (Hospitalization)
  Sender: FDA-Public Use
  Company Number: US-002147023-NVSC2024US019302

PATIENT
  Age: 69 Year
  Sex: Male

DRUGS (1)
  1. GLEEVEC [Suspect]
     Active Substance: IMATINIB MESYLATE
     Indication: Product used for unknown indication
     Dosage: UNK, UNKNOWN
     Route: 065

REACTIONS (4)
  - Gastrointestinal disorder [Unknown]
  - Diarrhoea [Unknown]
  - Renal injury [Unknown]
  - Septic shock [Unknown]

NARRATIVE: CASE EVENT DATE: 20230301
